FAERS Safety Report 14889406 (Version 3)
Quarter: 2018Q2

REPORT INFORMATION
  Report Type: Report from Study
  Country: None (occurrence: US)
  Receive Date: 20180514
  Receipt Date: 20180618
  Transmission Date: 20180711
  Serious: Yes (Hospitalization, Other)
  Sender: FDA-Public Use
  Company Number: US-ABBVIE-18K-163-2352963-00

PATIENT
  Sex: Female

DRUGS (3)
  1. HUMIRA [Suspect]
     Active Substance: ADALIMUMAB
     Dosage: DAY 15 LOADING DOSE
     Route: 058
     Dates: start: 20180321, end: 20180321
  2. HUMIRA [Suspect]
     Active Substance: ADALIMUMAB
     Dosage: FROM DAY 29
     Route: 058
     Dates: start: 20180404
  3. HUMIRA [Suspect]
     Active Substance: ADALIMUMAB
     Indication: COLITIS ULCERATIVE
     Dosage: DAY ONE LOADING DOSE
     Route: 058
     Dates: start: 20180307, end: 20180307

REACTIONS (12)
  - Malnutrition [Unknown]
  - Clostridium difficile infection [Unknown]
  - Adverse drug reaction [Unknown]
  - Fear [Unknown]
  - Constipation [Unknown]
  - Decreased appetite [Unknown]
  - Injection site erythema [Unknown]
  - Cyst [Unknown]
  - Nausea [Unknown]
  - Insomnia [Unknown]
  - Depressed mood [Unknown]
  - Anxiety [Unknown]

NARRATIVE: CASE EVENT DATE: 2018
